FAERS Safety Report 7391777-4 (Version None)
Quarter: 2011Q2

REPORT INFORMATION
  Report Type: 
  Country: None (occurrence: None)
  Receive Date: 20110404
  Receipt Date: 20110226
  Transmission Date: 20111010
  Serious: Yes (Other)
  Sender: FDA-Public Use
  Company Number: FR-ROCHE-764236

PATIENT
  Sex: Female
  Weight: 56 kg

DRUGS (1)
  1. BONIVA [Suspect]
     Indication: OSTEOPENIA
     Route: 065
     Dates: start: 20071105

REACTIONS (6)
  - TOOTH FRACTURE [None]
  - TEMPOROMANDIBULAR JOINT SYNDROME [None]
  - HEADACHE [None]
  - TOOTHACHE [None]
  - DERMATITIS ALLERGIC [None]
  - RASH MACULAR [None]
